FAERS Safety Report 6227000-3 (Version None)
Quarter: 2009Q2

REPORT INFORMATION
  Report Type: 
  Country: None (occurrence: None)
  Receive Date: 20090612
  Receipt Date: 20090602
  Transmission Date: 20091009
  Serious: Yes (Hospitalization)
  Sender: FDA-Public Use
  Company Number: PL-MEDIMMUNE-MEDI-0008452

PATIENT
  Sex: Male
  Weight: 6.08 kg

DRUGS (4)
  1. SYNAGIS [Suspect]
     Indication: BRONCHOPULMONARY DYSPLASIA
     Route: 030
     Dates: start: 20090130, end: 20090130
  2. SYNAGIS [Suspect]
     Dates: start: 20090227
  3. SYNAGIS [Suspect]
     Dates: start: 20090327
  4. SYNAGIS [Suspect]
     Dates: start: 20090429

REACTIONS (3)
  - NERVOUSNESS [None]
  - OROPHARYNGEAL PAIN [None]
  - PNEUMONIA [None]
